FAERS Safety Report 5907864-0 (Version None)
Quarter: 2008Q4

REPORT INFORMATION
  Report Type: 
  Country: None (occurrence: None)
  Receive Date: 20081003
  Receipt Date: 20080923
  Transmission Date: 20090506
  Serious: Yes (Death, Hospitalization)
  Sender: FDA-Public Use
  Company Number: FR-PFIZER INC-2008056220

PATIENT
  Sex: Female

DRUGS (8)
  1. TRIFLUCAN [Suspect]
     Indication: ORAL CANDIDIASIS
     Route: 048
  2. FUCIDINE CAP [Suspect]
     Indication: PARONYCHIA
     Dosage: TEXT:4 DF
     Route: 048
     Dates: start: 20080101, end: 20080101
  3. ROCEPHIN [Suspect]
     Dosage: TEXT:1 DF
     Route: 042
     Dates: start: 20080127, end: 20080201
  4. RAMIPRIL [Suspect]
     Route: 048
  5. PREVISCAN [Suspect]
     Route: 048
     Dates: end: 20080129
  6. FUROSEMIDE [Suspect]
     Route: 048
     Dates: end: 20080126
  7. NEXIUM [Suspect]
     Route: 048
     Dates: end: 20080126
  8. PARAPSYLLIUM [Suspect]
     Route: 048
     Dates: end: 20080126

REACTIONS (4)
  - CHOLESTASIS [None]
  - CYTOLYTIC HEPATITIS [None]
  - JAUNDICE [None]
  - RENAL FAILURE ACUTE [None]
